FAERS Safety Report 6557661-0 (Version None)
Quarter: 2010Q1

REPORT INFORMATION
  Report Type: 
  Country: None (occurrence: None)
  Receive Date: 20100129
  Receipt Date: 20090729
  Transmission Date: 20100710
  Serious: No
  Sender: FDA-Public Use
  Company Number: A0800474A

PATIENT
  Age: 37 Year
  Sex: Male

DRUGS (6)
  1. COMBIVIR [Suspect]
     Indication: HIV INFECTION
     Route: 048
  2. GABAPENTIN [Concomitant]
  3. VIREAD [Concomitant]
  4. CYMBALTA [Concomitant]
  5. OMEPRAZOLE [Concomitant]
  6. CLARITIN [Concomitant]

REACTIONS (4)
  - DECREASED APPETITE [None]
  - FATIGUE [None]
  - NAUSEA [None]
  - WEIGHT DECREASED [None]
